FAERS Safety Report 22381647 (Version 1)
Quarter: 2023Q2

REPORT INFORMATION
  Report Type: Spontaneous
  Country: CN (occurrence: CN)
  Receive Date: 20230530
  Receipt Date: 20230530
  Transmission Date: 20230721
  Serious: Yes (Other)
  Sender: FDA-Public Use
  Company Number: None

PATIENT
  Age: 56 Year
  Sex: Female
  Weight: 45 kg

DRUGS (4)
  1. CYCLOPHOSPHAMIDE [Suspect]
     Active Substance: CYCLOPHOSPHAMIDE
     Indication: Neoplasm malignant
     Dosage: 0.7 G QD AT 16:26, DILUTED WITH 30 ML OF 5 % GLUCOSE
     Route: 041
     Dates: start: 20230505, end: 20230505
  2. CYCLOPHOSPHAMIDE [Suspect]
     Active Substance: CYCLOPHOSPHAMIDE
     Indication: Chemotherapy
  3. CYCLOPHOSPHAMIDE [Suspect]
     Active Substance: CYCLOPHOSPHAMIDE
     Indication: Neoplasm
  4. DEXTROSE MONOHYDRATE [Suspect]
     Active Substance: DEXTROSE MONOHYDRATE
     Indication: Medication dilution
     Dosage: 30 ML AT 16:26, USED TO DILUTE 0.7 G OF CYCLOPHOSPHAMIDE
     Route: 041
     Dates: start: 20230505

REACTIONS (3)
  - Hepatic function abnormal [Recovering/Resolving]
  - Liver injury [Unknown]
  - Discomfort [Unknown]

NARRATIVE: CASE EVENT DATE: 20230509
